FAERS Safety Report 8315058-7 (Version None)
Quarter: 2012Q2

REPORT INFORMATION
  Report Type: 
  Country: None (occurrence: None)
  Receive Date: 20120426
  Receipt Date: 20120419
  Transmission Date: 20120825
  Serious: Yes (Life-Threatening, Hospitalization, Other)
  Sender: FDA-Public Use
  Company Number: US-ALEXION PHARMACEUTICALS INC.-A201101647

PATIENT
  Sex: Female
  Weight: 72.1 kg

DRUGS (8)
  1. SOLIRIS [Suspect]
     Indication: PAROXYSMAL NOCTURNAL HAEMOGLOBINURIA
     Dosage: 900 MG, Q2W
     Route: 042
     Dates: start: 20090828
  2. KEPPRA [Concomitant]
     Dosage: 1 G, BID
     Dates: start: 20060101
  3. NORCO [Concomitant]
     Dosage: UNK
  4. ACETAZOLAMIDE [Concomitant]
     Dosage: 250 MG, BID
  5. MIRALAX [Concomitant]
     Dosage: UNK
  6. COLACE [Concomitant]
     Dosage: UNK
  7. IRON [Concomitant]
     Dosage: UNK
  8. CEFTRIAXONE [Suspect]
     Indication: BLOOD CULTURE POSITIVE

REACTIONS (5)
  - SEPSIS [None]
  - RASH [None]
  - CHEST PAIN [None]
  - HEADACHE [None]
  - GONORRHOEA [None]
